FAERS Safety Report 17048250 (Version 5)
Quarter: 2022Q1

REPORT INFORMATION
  Report Type: Spontaneous
  Country: DE (occurrence: DE)
  Receive Date: 20191119
  Receipt Date: 20220106
  Transmission Date: 20220423
  Serious: Yes (Hospitalization, Other)
  Sender: FDA-Public Use
  Company Number: DE-002147023-PHHY2019DE131179

PATIENT
  Sex: Male

DRUGS (17)
  1. HYDROCHLOROTHIAZIDE\VALSARTAN [Suspect]
     Active Substance: HYDROCHLOROTHIAZIDE\VALSARTAN
     Indication: Product used for unknown indication
     Dosage: 1 DF, QD (160 MG OF VALSARTAN AND 12.5 MG OF HYDROCHLOROTHIAZIDE), START DATE; 18-JUN-2015
     Route: 065
     Dates: end: 2018
  2. VALSARTAN [Suspect]
     Active Substance: VALSARTAN
     Indication: Hypertension
     Dosage: UNK, QD,(160/12.5 MG)
     Dates: start: 201209
  3. HYDROCHLOROTHIAZIDE\VALSARTAN [Suspect]
     Active Substance: HYDROCHLOROTHIAZIDE\VALSARTAN
     Indication: Hypertension
     Dosage: UNK, QD (160/12.5 MG), START DATE: ??-???-2015
     Dates: end: 2018
  4. HYDROCHLOROTHIAZIDE\VALSARTAN [Suspect]
     Active Substance: HYDROCHLOROTHIAZIDE\VALSARTAN
     Dosage: UNK UNK, QD (160/12.5 MG)
     Dates: start: 20140621, end: 201502
  5. HYDROCHLOROTHIAZIDE\VALSARTAN [Suspect]
     Active Substance: HYDROCHLOROTHIAZIDE\VALSARTAN
     Indication: Hypertension
     Dosage: UNK (320/12.5 MG)
     Route: 065
     Dates: start: 201008, end: 201009
  6. HYDROCHLOROTHIAZIDE\VALSARTAN [Suspect]
     Active Substance: HYDROCHLOROTHIAZIDE\VALSARTAN
     Dosage: UNK (160/12.5 MG)
     Dates: start: 201002, end: 201008
  7. HYDROCHLOROTHIAZIDE\VALSARTAN [Suspect]
     Active Substance: HYDROCHLOROTHIAZIDE\VALSARTAN
     Dosage: UNK (160/12.5 MG)
     Route: 065
     Dates: start: 201009, end: 201407
  8. HYDROCHLOROTHIAZIDE\VALSARTAN [Suspect]
     Active Substance: HYDROCHLOROTHIAZIDE\VALSARTAN
     Dosage: 1 DOSAGE FORM, QD
     Route: 065
     Dates: start: 2000
  9. HYDROCHLOROTHIAZIDE\VALSARTAN [Concomitant]
     Active Substance: HYDROCHLOROTHIAZIDE\VALSARTAN
     Indication: Product used for unknown indication
     Dosage: 160 MILLIGRAM
     Route: 065
     Dates: start: 20170703
  10. HYDROCHLOROTHIAZIDE\VALSARTAN [Concomitant]
     Active Substance: HYDROCHLOROTHIAZIDE\VALSARTAN
     Dosage: UNK, (160/12.5 MG)
     Route: 065
     Dates: start: 201502, end: 201506
  11. HYDROCHLOROTHIAZIDE\VALSARTAN [Concomitant]
     Active Substance: HYDROCHLOROTHIAZIDE\VALSARTAN
     Dosage: UNK, (160/12.5 MG)
     Route: 065
     Dates: start: 201209, end: 201209
  12. HYDROCHLOROTHIAZIDE\VALSARTAN [Concomitant]
     Active Substance: HYDROCHLOROTHIAZIDE\VALSARTAN
     Dosage: UNK, (160/12.5 MG)
     Route: 065
     Dates: start: 201807
  13. NEBIDO [Concomitant]
     Active Substance: TESTOSTERONE UNDECANOATE
     Dosage: 1000 MILLIGRAM, 3XMONTHS
  14. METOPROLOL SUCCINATE [Concomitant]
     Active Substance: METOPROLOL SUCCINATE
     Indication: Product used for unknown indication
     Dosage: 190 MILLIGRAM, QD, ONCE IN THE MORNING
  15. LATANOPROST;TIMOLOL [Concomitant]
     Indication: Product used for unknown indication
     Dosage: ONCE IN THE MORNING (1-0-0
  16. METFORMIN HYDROCHLORIDE\SAXAGLIPTIN [Concomitant]
     Active Substance: METFORMIN HYDROCHLORIDE\SAXAGLIPTIN
     Indication: Product used for unknown indication
     Dosage: UNK, BID (ONE IN THE MORNING, IN THE EVENING )
     Route: 065
  17. METAMIZOLE [Concomitant]
     Active Substance: METAMIZOLE
     Indication: Product used for unknown indication
     Dosage: 500 MILLIGRAM, PRN, ONCE IN THE MORNING, ONCE AT NOON, ONCE IN THE EVENING
     Route: 065

REACTIONS (17)
  - Renal cyst [Unknown]
  - Fear [Unknown]
  - Type 2 diabetes mellitus [Unknown]
  - Gallbladder enlargement [Unknown]
  - Glaucoma [Unknown]
  - Testicular cyst [Unknown]
  - Disturbance in attention [Unknown]
  - Listless [Unknown]
  - Quality of life decreased [Unknown]
  - Anxiety [Unknown]
  - Mental disorder [Unknown]
  - Sleep disorder [Unknown]
  - Emotional distress [Unknown]
  - Fatigue [Unknown]
  - Hypertension [Unknown]
  - Flank pain [Unknown]
  - Lipoma [Unknown]

NARRATIVE: CASE EVENT DATE: 20050101
